FAERS Safety Report 19029386 (Version 1)
Quarter: 2021Q1

REPORT INFORMATION
  Report Type: Spontaneous
  Country: ES (occurrence: ES)
  Receive Date: 20210318
  Receipt Date: 20210318
  Transmission Date: 20210420
  Serious: Yes (Hospitalization, Other)
  Sender: FDA-Public Use
  Company Number: ES-EXELTIS PHARMACEUTICAL HOLDING, S.L.-2103ES00270

PATIENT
  Age: 38 Year
  Sex: Female

DRUGS (2)
  1. SLINDA [Suspect]
     Active Substance: DROSPIRENONE
     Indication: OVARIAN CYST
     Dosage: 4 MILLIGRAM, QD
     Route: 048
     Dates: start: 20210223, end: 20210309
  2. SLINDA [Suspect]
     Active Substance: DROSPIRENONE
     Indication: METRORRHAGIA

REACTIONS (4)
  - Drug effective for unapproved indication [Unknown]
  - Off label use [Recovered/Resolved]
  - Deep vein thrombosis [Recovering/Resolving]
  - Inflammatory pain [Recovering/Resolving]

NARRATIVE: CASE EVENT DATE: 20210223
